FAERS Safety Report 12318360 (Version 1)
Quarter: 2016Q2

REPORT INFORMATION
  Report Type: Spontaneous
  Country: US (occurrence: None)
  Receive Date: 20160428
  Receipt Date: 20160428
  Transmission Date: 20160815
  Serious: Yes (Other)
  Sender: FDA-Public Use
  Company Number: None

PATIENT
  Age: 61 Year
  Sex: Female

DRUGS (1)
  1. IMATINIB 400MG RANBAXY [Suspect]
     Active Substance: IMATINIB
     Indication: NEOPLASM MALIGNANT
     Route: 048
     Dates: start: 20160331, end: 20160425

REACTIONS (1)
  - Drug hypersensitivity [None]
